FAERS Safety Report 5625176-X (Version None)
Quarter: 2008Q1

REPORT INFORMATION
  Report Type: 
  Country: None (occurrence: None)
  Receive Date: 20080213
  Receipt Date: 20080201
  Transmission Date: 20080703
  Serious: Yes (Hospitalization, Other)
  Sender: FDA-Public Use
  Company Number: US-WYE-H02399808

PATIENT
  Age: 3 Year
  Sex: Male
  Weight: 13 kg

DRUGS (4)
  1. BENEFIX [Suspect]
     Indication: FACTOR IX DEFICIENCY
     Dosage: DATES, DOSE AND FREQUENCY OF THERAPY NOT PROVIDED
     Route: 042
  2. AMINOCAPROIC ACID [Concomitant]
     Dosage: DOSE AND FREQUENCT NOT PROVIDED
     Route: 065
  3. OXYCODONE HCL AND ACETAMINOPHEN [Suspect]
     Indication: THERMAL BURN
     Dosage: DOSE NOT SPECIFIED
     Route: 065
     Dates: start: 20071223, end: 20071223
  4. EPTACOG ALFA [Concomitant]
     Dosage: DATES, DOSE AND FREQUENCY NOT SPECIFIED
     Route: 065

REACTIONS (4)
  - COUGH [None]
  - FACTOR IX INHIBITION [None]
  - PYREXIA [None]
  - TACHYPNOEA [None]
